FAERS Safety Report 5396401-8 (Version None)
Quarter: 2007Q3

REPORT INFORMATION
  Report Type: 
  Country: None (occurrence: None)
  Receive Date: 20070718
  Receipt Date: 20070410
  Transmission Date: 20080115
  Serious: Yes (Hospitalization, Other)
  Sender: FDA-Public Use
  Company Number: 2006141240

PATIENT
  Age: 42 Year
  Sex: Female
  Weight: 76.2 kg

DRUGS (2)
  1. CELEBREX [Suspect]
     Indication: BACK PAIN
     Dosage: 400 MG (200 MG, 2 IN 1 D)
     Dates: start: 20010801
  2. CELEBREX [Suspect]
     Indication: NECK PAIN
     Dosage: 400 MG (200 MG, 2 IN 1 D)
     Dates: start: 20010801

REACTIONS (1)
  - CEREBROVASCULAR ACCIDENT [None]
